FAERS Safety Report 6240336-5 (Version None)
Quarter: 2009Q2

REPORT INFORMATION
  Report Type: 
  Country: None (occurrence: None)
  Receive Date: 20090623
  Receipt Date: 20080725
  Transmission Date: 20091009
  Serious: No
  Sender: FDA-Public Use
  Company Number: US-ASTRAZENECA-2008UW15413

PATIENT
  Age: 15897 Day
  Sex: Female
  Weight: 97.5 kg

DRUGS (6)
  1. PULMICORT RESPULES [Suspect]
     Indication: NASAL SEPTUM DEVIATION
     Route: 055
     Dates: start: 20080724
  2. PULMICORT RESPULES [Suspect]
     Indication: SINUSITIS
     Route: 055
     Dates: start: 20080724
  3. SALINE NASAL RINSE [Concomitant]
  4. ANTIDEPRESSANT [Concomitant]
  5. FLONASE [Concomitant]
  6. AMOXICILLIN [Concomitant]
     Indication: SINUSITIS

REACTIONS (4)
  - CHILLS [None]
  - FATIGUE [None]
  - MALAISE [None]
  - NAUSEA [None]
